FAERS Safety Report 19702156 (Version 1)
Quarter: 2021Q3

REPORT INFORMATION
  Report Type: Spontaneous
  Country: IN (occurrence: IN)
  Receive Date: 20210813
  Receipt Date: 20210813
  Transmission Date: 20211014
  Serious: Yes (Death, Other)
  Sender: FDA-Public Use
  Company Number: IN-AMERICAN REGENT INC-2021002082

PATIENT

DRUGS (1)
  1. FERINJECT [Suspect]
     Active Substance: FERRIC CARBOXYMALTOSE
     Indication: PRODUCT USED FOR UNKNOWN INDICATION
     Dosage: 5 ML

REACTIONS (5)
  - Anxiety [Fatal]
  - Circulatory collapse [Fatal]
  - Myocarditis [Unknown]
  - Restlessness [Fatal]
  - Death [Fatal]
